FAERS Safety Report 20668665 (Version 1)
Quarter: 2022Q2

REPORT INFORMATION
  Report Type: Spontaneous
  Country: CR (occurrence: CR)
  Receive Date: 20220404
  Receipt Date: 20220404
  Transmission Date: 20220721
  Serious: Yes (Other)
  Sender: FDA-Public Use
  Company Number: CR-BAYER-2022A044740

PATIENT
  Age: 55 Year
  Sex: Female

DRUGS (1)
  1. BETAFERON [Suspect]
     Active Substance: INTERFERON BETA-1B
     Indication: Multiple sclerosis
     Dosage: 1 ML, QOD (EVERY 48 HOURS)
     Route: 058
     Dates: start: 20070101

REACTIONS (4)
  - Deep vein thrombosis [Recovered/Resolved]
  - COVID-19 [Recovered/Resolved with Sequelae]
  - Mobility decreased [None]
  - Decubitus ulcer [Recovered/Resolved]

NARRATIVE: CASE EVENT DATE: 20220203
